APPROVED DRUG PRODUCT: CIMETIDINE
Active Ingredient: CIMETIDINE
Strength: 200MG
Dosage Form/Route: TABLET;ORAL
Application: A075345 | Product #001
Applicant: IVAX PHARMACEUTICALS INC SUB TEVA PHARMACEUTICALS USA
Approved: Jun 16, 1999 | RLD: No | RS: No | Type: DISCN